FAERS Safety Report 4368772-2 (Version None)
Quarter: 2004Q2

REPORT INFORMATION
  Report Type: 
  Country: None (occurrence: None)
  Receive Date: 20040525
  Receipt Date: 20040512
  Transmission Date: 20050107
  Serious: No
  Sender: FDA-Public Use
  Company Number: 2004UW09913

PATIENT
  Age: 68 Year
  Sex: Female

DRUGS (7)
  1. CRESTOR [Suspect]
     Dosage: 10 MG DAILY PO
     Route: 048
  2. COVERSYL [Concomitant]
  3. ASPIRIN [Concomitant]
  4. HYDROCHLOROTHIAZIDE [Concomitant]
  5. METOPROLOL TARTRATE [Concomitant]
  6. NITRO-DUR [Concomitant]
  7. NITROGLYCERIN [Concomitant]

REACTIONS (5)
  - CONSTIPATION [None]
  - FEELING ABNORMAL [None]
  - PAIN IN EXTREMITY [None]
  - PARKINSONISM [None]
  - TREMOR [None]
